FAERS Safety Report 9413550 (Version 2)
Quarter: 2013Q1

REPORT INFORMATION
  Report Type: Spontaneous
  Country: FR (occurrence: None)
  Receive Date: 20130213
  Receipt Date: 20130213
  Transmission Date: 20140127
  Serious: Yes (Life-Threatening, Hospitalization, Other)
  Sender: FDA-Public Use
  Company Number: 220352

PATIENT
  Age: 66 Year
  Sex: Female
  Weight: 56 kg

DRUGS (11)
  1. INNOHEP [Suspect]
     Indication: DEEP VEIN THROMBOSIS
     Route: 058
     Dates: start: 20121207, end: 20130120
  2. HEPARIN (HEPARIN) (INJECTION) [Concomitant]
  3. TAZOCILLINE (PIP/TAZO) (INJECTION) [Concomitant]
  4. MOPRAL (OMEPRAZOLE) (INJECTION) [Concomitant]
  5. SUFENTA (SUFENTANIL CITRATE) (INJECTION) [Concomitant]
  6. HYPNOVEL (MIDAZOLAM HYDROCHLORIDE) (INJECTION) [Concomitant]
  7. INEXIUM (ESOMEPRAZOLE MAGNESIUM) (INJECTION) [Concomitant]
  8. MORPHINE (MORPHINE) (INJECTION) [Concomitant]
  9. TRANXENE (CLORAZEPATE DIPOTASSIUM) (INJECTION) [Concomitant]
  10. AUGMENTIN (AUGMENTIN /00756801/) (INJECTION) [Concomitant]
  11. LASILIX (FUROSEMIDE) (INJECTION) [Concomitant]

REACTIONS (6)
  - Thrombocytopenia [None]
  - Anaemia [None]
  - Oesophageal ulcer [None]
  - Incorrect drug administration duration [None]
  - Haematocrit decreased [None]
  - Haemoglobin decreased [None]
